FAERS Safety Report 12225001 (Version 1)
Quarter: 2016Q1

REPORT INFORMATION
  Report Type: Spontaneous
  Country: FR (occurrence: FR)
  Receive Date: 20160331
  Receipt Date: 20160331
  Transmission Date: 20160526
  Serious: Yes (Life-Threatening, Hospitalization)
  Sender: FDA-Public Use
  Company Number: FR-009507513-1603FRA010994

PATIENT
  Age: 4 Year
  Sex: Male

DRUGS (2)
  1. TOPALGIC (TRAMADOL HYDROCHLORIDE) [Suspect]
     Active Substance: TRAMADOL
     Dosage: 120 GTT, UNK
     Dates: start: 20160216, end: 20160216
  2. CELESTENE [Suspect]
     Active Substance: BETAMETHASONE
     Dosage: UNK

REACTIONS (1)
  - Wrong drug administered [Unknown]

NARRATIVE: CASE EVENT DATE: 20160216
